FAERS Safety Report 12315638 (Version 1)
Quarter: 2016Q2

REPORT INFORMATION
  Report Type: Spontaneous
  Country: FI (occurrence: FI)
  Receive Date: 20160428
  Receipt Date: 20160428
  Transmission Date: 20160815
  Serious: Yes (Other)
  Sender: FDA-Public Use
  Company Number: FI-ROCHE-1745917

PATIENT

DRUGS (2)
  1. COBIMETINIB [Suspect]
     Active Substance: COBIMETINIB
     Indication: MALIGNANT MELANOMA
     Route: 065
  2. VEMURAFENIB [Suspect]
     Active Substance: VEMURAFENIB
     Indication: MALIGNANT MELANOMA
     Route: 048

REACTIONS (7)
  - Gait disturbance [Unknown]
  - Squamous cell carcinoma [Unknown]
  - Photosensitivity reaction [Unknown]
  - Liver function test [Unknown]
  - Diarrhoea [Unknown]
  - Conduction disorder [Unknown]
  - Arthralgia [Unknown]
